FAERS Safety Report 15342538 (Version 1)
Quarter: 2018Q3

REPORT INFORMATION
  Report Type: Spontaneous
  Country: US (occurrence: US)
  Receive Date: 20180903
  Receipt Date: 20180903
  Transmission Date: 20181010
  Serious: No
  Sender: FDA-Public Use
  Company Number: US-ELI_LILLY_AND_COMPANY-US201808005551

PATIENT
  Sex: Male

DRUGS (4)
  1. HUMULIN 70/30 [Suspect]
     Active Substance: INSULIN HUMAN
     Dosage: 26 U, EACH EVENING(NIGHT)
     Route: 058
  2. HUMULIN 70/30 [Suspect]
     Active Substance: INSULIN HUMAN
     Indication: PRODUCT USED FOR UNKNOWN INDICATION
     Dosage: 22 U, EACH MORNING
     Route: 058
  3. HUMULIN 70/30 [Suspect]
     Active Substance: INSULIN HUMAN
     Dosage: 22 U, EACH MORNING
     Route: 058
  4. HUMULIN 70/30 [Suspect]
     Active Substance: INSULIN HUMAN
     Dosage: 26 U, EACH EVENING(NIGHT)
     Route: 058

REACTIONS (3)
  - Accidental underdose [Unknown]
  - Drug dose omission [Unknown]
  - Blood glucose increased [Unknown]
